FAERS Safety Report 8036709-0 (Version None)
Quarter: 2012Q1

REPORT INFORMATION
  Report Type: 
  Country: None (occurrence: None)
  Receive Date: 20120111
  Receipt Date: 20120110
  Transmission Date: 20120608
  Serious: Yes (Life-Threatening, Other)
  Sender: FDA-Public Use
  Company Number: US-ROCHE-1027898

PATIENT
  Sex: Male
  Weight: 77 kg

DRUGS (5)
  1. LOVENOX [Concomitant]
     Indication: THROMBOSIS PROPHYLAXIS
     Dates: start: 20111221
  2. ZOFRAN [Concomitant]
     Indication: NAUSEA
     Dates: start: 20111231
  3. OMEPRAZOLE [Concomitant]
     Route: 048
     Dates: start: 20110610
  4. ZELBORAF [Suspect]
     Indication: METASTATIC MALIGNANT MELANOMA
     Route: 048
     Dates: start: 20111229
  5. PREDNISONE TAB [Concomitant]
     Indication: SCLEROEDEMA
     Dosage: DOSE: 60 (NO UNITS PROVIDED)
     Route: 048
     Dates: start: 20111211

REACTIONS (2)
  - CEREBROVASCULAR ACCIDENT [None]
  - DYSPHAGIA [None]
